FAERS Safety Report 6252080-9 (Version None)
Quarter: 2009Q2

REPORT INFORMATION
  Report Type: 
  Country: None (occurrence: None)
  Receive Date: 20090630
  Receipt Date: 20050831
  Transmission Date: 20091009
  Serious: Yes (Death)
  Sender: FDA-Public Use
  Company Number: US-ROCHE-638840

PATIENT
  Sex: Male

DRUGS (17)
  1. ENFUVIRTIDE [Suspect]
     Route: 065
     Dates: start: 20030812, end: 20050831
  2. VIREAD [Concomitant]
     Dates: start: 20010524, end: 20050412
  3. VIDEX EC [Concomitant]
     Dates: start: 20010822, end: 20050412
  4. CRIXIVAN [Concomitant]
     Dates: start: 20030722, end: 20040830
  5. RESCRIPTOR [Concomitant]
     Dates: start: 20030722, end: 20030826
  6. APTIVUS [Concomitant]
     Dates: start: 20050412, end: 20050831
  7. NORVIR [Concomitant]
     Dates: start: 20050412, end: 20050831
  8. TRUVADA [Concomitant]
     Dates: start: 20050412, end: 20050831
  9. DIFLUCAN [Concomitant]
     Dates: start: 20030522, end: 20040115
  10. DIFLUCAN [Concomitant]
     Dates: start: 20040101, end: 20050412
  11. DIFLUCAN [Concomitant]
     Dates: start: 20050412, end: 20050831
  12. SPORANOX [Concomitant]
     Dates: start: 20040115, end: 20040101
  13. SPORANOX [Concomitant]
     Dates: start: 20050823, end: 20050831
  14. CIPRO [Concomitant]
     Dates: start: 20050310, end: 20050315
  15. AVELOX [Concomitant]
     Dates: start: 20050630, end: 20050706
  16. CLINDAMYCIN [Concomitant]
     Dates: start: 20050630, end: 20050715
  17. AMOXICILLIN [Concomitant]
     Dates: start: 20050818, end: 20050828

REACTIONS (1)
  - DEATH [None]
